FAERS Safety Report 8504574-0 (Version None)
Quarter: 2012Q3

REPORT INFORMATION
  Report Type: 
  Country: None (occurrence: None)
  Receive Date: 20120711
  Receipt Date: 20120710
  Transmission Date: 20120928
  Serious: Yes (Death, Life-Threatening)
  Sender: FDA-Public Use
  Company Number: US-ROCHE-1078600

PATIENT
  Sex: Female

DRUGS (1)
  1. XELODA [Suspect]
     Indication: BREAST CANCER METASTATIC
     Route: 048
     Dates: start: 20120522, end: 20120530

REACTIONS (4)
  - MUCOSAL INFLAMMATION [None]
  - ORAL MUCOSAL BLISTERING [None]
  - DIARRHOEA [None]
  - PNEUMONIA [None]
